FAERS Safety Report 16427007 (Version 1)
Quarter: 2019Q2

REPORT INFORMATION
  Report Type: Spontaneous
  Country: US (occurrence: US)
  Receive Date: 20190613
  Receipt Date: 20190613
  Transmission Date: 20190711
  Serious: Yes (Hospitalization)
  Sender: FDA-Public Use
  Company Number: US-TEVA-2019-US-1061372

PATIENT
  Age: 61 Year
  Sex: Male

DRUGS (13)
  1. WARFARIN [Suspect]
     Active Substance: WARFARIN
     Route: 065
  2. VASOPRESSIN. [Concomitant]
     Active Substance: VASOPRESSIN
     Route: 065
  3. BIVALIRUDIN. [Suspect]
     Active Substance: BIVALIRUDIN
     Route: 050
  4. MIDAZOLAM [Concomitant]
     Active Substance: MIDAZOLAM HYDROCHLORIDE
     Indication: INDUCTION OF ANAESTHESIA
     Route: 065
  5. BIVALIRUDIN. [Suspect]
     Active Substance: BIVALIRUDIN
     Indication: ANTICOAGULANT THERAPY
     Route: 050
  6. EPINEPHRINE. [Concomitant]
     Active Substance: EPINEPHRINE
     Route: 065
  7. ROCURONIUM [Concomitant]
     Active Substance: ROCURONIUM BROMIDE
     Indication: MUSCLE RELAXANT THERAPY
     Route: 065
  8. WARFARIN [Suspect]
     Active Substance: WARFARIN
     Indication: ANTICOAGULANT THERAPY
     Dosage: INITIATED ON POSTOPERATIVE DAY 2
     Route: 065
  9. BIVALIRUDIN. [Suspect]
     Active Substance: BIVALIRUDIN
     Dosage: GIVEN IN 30 MINUTES
     Route: 050
  10. FENTANYL. [Concomitant]
     Active Substance: FENTANYL
     Indication: INDUCTION OF ANAESTHESIA
     Route: 065
  11. PROPOFOL. [Concomitant]
     Active Substance: PROPOFOL
     Indication: INDUCTION OF ANAESTHESIA
     Route: 065
  12. ISOFLURANE. [Concomitant]
     Active Substance: ISOFLURANE
     Indication: MAINTENANCE OF ANAESTHESIA
     Route: 065
  13. PHENYLEPHRINE [Concomitant]
     Active Substance: PHENYLEPHRINE\PHENYLEPHRINE HYDROCHLORIDE
     Route: 065

REACTIONS (1)
  - Gastrointestinal haemorrhage [Recovered/Resolved]
